FAERS Safety Report 11975473 (Version 2)
Quarter: 2016Q1

REPORT INFORMATION
  Report Type: Spontaneous
  Country: US (occurrence: US)
  Receive Date: 20160128
  Receipt Date: 20160204
  Transmission Date: 20160526
  Serious: Yes (Hospitalization)
  Sender: FDA-Public Use
  Company Number: US-ROCHE-1688944

PATIENT
  Age: 58 Year
  Sex: Female

DRUGS (9)
  1. ERIVEDGE [Suspect]
     Active Substance: VISMODEGIB
     Indication: BASAL CELL CARCINOMA
     Route: 048
     Dates: start: 20151217
  2. CLONAZEPAM. [Concomitant]
     Active Substance: CLONAZEPAM
  3. LACTULOSE. [Concomitant]
     Active Substance: LACTULOSE
  4. PAXIL (UNITED STATES) [Concomitant]
  5. ERIVEDGE [Suspect]
     Active Substance: VISMODEGIB
     Route: 048
     Dates: end: 20151230
  6. SPIRONOLACTONE. [Concomitant]
     Active Substance: SPIRONOLACTONE
  7. HARVONI [Concomitant]
     Active Substance: LEDIPASVIR\SOFOSBUVIR
  8. BUSPAR [Concomitant]
     Active Substance: BUSPIRONE HYDROCHLORIDE
  9. FUROSEMIDE. [Concomitant]
     Active Substance: FUROSEMIDE

REACTIONS (4)
  - Fatigue [Unknown]
  - Nausea [Unknown]
  - Liver disorder [Unknown]
  - Ascites [Unknown]

NARRATIVE: CASE EVENT DATE: 20151228
